FAERS Safety Report 19913102 (Version 1)
Quarter: 2021Q4

REPORT INFORMATION
  Report Type: Spontaneous
  Country: IT (occurrence: IT)
  Receive Date: 20211004
  Receipt Date: 20211004
  Transmission Date: 20220303
  Serious: Yes (Other)
  Sender: FDA-Public Use
  Company Number: None

PATIENT
  Age: 28 Year
  Sex: Female
  Weight: 55 kg

DRUGS (2)
  1. LEVOFLOXACIN [Suspect]
     Active Substance: LEVOFLOXACIN
     Indication: Pyrexia
     Dosage: 500 MILLIGRAM, QD
  2. CIPROFLOXACIN [Suspect]
     Active Substance: CIPROFLOXACIN
     Indication: Pyrexia
     Dosage: 500 MILLIGRAM, QD

REACTIONS (7)
  - Neuropathy peripheral [Not Recovered/Not Resolved]
  - Phobia [Not Recovered/Not Resolved]
  - Myoclonus [Not Recovered/Not Resolved]
  - Taste disorder [Not Recovered/Not Resolved]
  - Panic attack [Not Recovered/Not Resolved]
  - Anxiety [Not Recovered/Not Resolved]
  - Medication error [Unknown]

NARRATIVE: CASE EVENT DATE: 20150901
